FAERS Safety Report 11293396 (Version 3)
Quarter: 2015Q3

REPORT INFORMATION
  Report Type: Spontaneous
  Country: US (occurrence: US)
  Receive Date: 20150722
  Receipt Date: 20150814
  Transmission Date: 20151125
  Serious: No
  Sender: FDA-Public Use
  Company Number: US-PFIZER INC-2015243561

PATIENT
  Age: 71 Year
  Sex: Female
  Weight: 77 kg

DRUGS (3)
  1. LATANOPROST. [Suspect]
     Active Substance: LATANOPROST
     Indication: GLAUCOMA
     Dosage: 1 GTT, DAILY (AT BED TIME)
     Dates: start: 20150718
  2. LATANOPROST. [Suspect]
     Active Substance: LATANOPROST
     Dosage: 1 GTT, UNK (1 DROP AT BED TIME)
     Route: 047
     Dates: start: 20150702
  3. LATANOPROST. [Suspect]
     Active Substance: LATANOPROST
     Dosage: UNK

REACTIONS (3)
  - Eye pain [Recovered/Resolved]
  - Product quality issue [Unknown]
  - Eye irritation [Unknown]

NARRATIVE: CASE EVENT DATE: 20150718
